FAERS Safety Report 8444031-3 (Version None)
Quarter: 2012Q2

REPORT INFORMATION
  Report Type: 
  Country: None (occurrence: None)
  Receive Date: 20120618
  Receipt Date: 20120612
  Transmission Date: 20120825
  Serious: Yes (Other)
  Sender: FDA-Public Use
  Company Number: PHHY2012NL050603

PATIENT
  Sex: Female

DRUGS (3)
  1. ZOMETA [Suspect]
     Dosage: 4 MG/ 100 ML, IN 20 MIN, 1X PER 42 DAYS
     Route: 042
     Dates: start: 20120418
  2. ZOMETA [Suspect]
     Indication: BREAST CANCER METASTATIC
     Dosage: 4 MG/ 100 ML, IN 20 MIN, 1X PER 42 DAYS
     Route: 042
     Dates: start: 20090817
  3. ZOMETA [Suspect]
     Dosage: 4 MG/ 100 ML, IN 20 MIN, 1X PER 42 DAYS
     Route: 042
     Dates: start: 20120601

REACTIONS (3)
  - PAIN IN JAW [None]
  - OSTEONECROSIS OF JAW [None]
  - APHAGIA [None]
